FAERS Safety Report 12322026 (Version 3)
Quarter: 2016Q3

REPORT INFORMATION
  Report Type: Spontaneous
  Country: JP (occurrence: JP)
  Receive Date: 20160502
  Receipt Date: 20160715
  Transmission Date: 20161109
  Serious: Yes (Hospitalization, Other)
  Sender: FDA-Public Use
  Company Number: JP-GLAXOSMITHKLINE-JP2016JPN058840

PATIENT
  Age: 20 Year
  Sex: Female

DRUGS (8)
  1. DEPAKENE [Concomitant]
     Active Substance: VALPROIC ACID
  2. SELENICA-R [Concomitant]
     Active Substance: VALPROATE SODIUM
     Dosage: 200 UNK, QD
     Dates: start: 20160315
  3. SELENICA-R [Concomitant]
     Active Substance: VALPROATE SODIUM
     Dosage: 200 MG, TID
  4. LAMICTAL [Suspect]
     Active Substance: LAMOTRIGINE
     Indication: EPILEPSY
     Dosage: 25 MG, QOD
     Route: 048
     Dates: start: 20160315, end: 20160329
  5. LAMICTAL [Suspect]
     Active Substance: LAMOTRIGINE
     Dosage: 50 MG, 1D
     Route: 048
     Dates: start: 20160408, end: 20160408
  6. LAMICTAL [Suspect]
     Active Substance: LAMOTRIGINE
     Dosage: 25 MG, 1D
     Route: 048
     Dates: start: 20160330, end: 20160408
  7. SELENICA-R [Concomitant]
     Active Substance: VALPROATE SODIUM
     Dosage: 600 MG, 1D
     Dates: start: 20160325
  8. E KEPPRA [Concomitant]
     Active Substance: LEVETIRACETAM

REACTIONS (2)
  - Rash [Recovering/Resolving]
  - Drug eruption [Recovered/Resolved]

NARRATIVE: CASE EVENT DATE: 20160408
